FAERS Safety Report 5801891-X (Version None)
Quarter: 2008Q3

REPORT INFORMATION
  Report Type: 
  Country: None (occurrence: None)
  Receive Date: 20080707
  Receipt Date: 20080701
  Transmission Date: 20090109
  Serious: Yes (Hospitalization)
  Sender: FDA-Public Use
  Company Number: JP-ASTRAZENECA-2008AP05132

PATIENT
  Age: 76 Year
  Sex: Male

DRUGS (3)
  1. XYLOCAINE VISCOUS [Suspect]
     Dosage: DOSE UNKNOWN
     Route: 048
     Dates: start: 20080201, end: 20080201
  2. XYLOCAINE [Suspect]
     Dosage: DOSE UNKNOWN
     Route: 061
     Dates: start: 20080201, end: 20080201
  3. BOSMIN [Suspect]
     Route: 061
     Dates: start: 20080201, end: 20080201

REACTIONS (1)
  - SHOCK [None]
